FAERS Safety Report 5875541-0 (Version None)
Quarter: 2008Q3

REPORT INFORMATION
  Report Type: 
  Country: None (occurrence: None)
  Receive Date: 20080909
  Receipt Date: 20080902
  Transmission Date: 20090109
  Serious: Yes (Life-Threatening)
  Sender: FDA-Public Use
  Company Number: AU-ROCHE-584058

PATIENT
  Age: 11 Year
  Sex: Male
  Weight: 52 kg

DRUGS (2)
  1. CEFTRIAXONE SODIUM [Suspect]
     Indication: INFECTION
     Dosage: 1 GRAM 1 TIME.
     Route: 042
     Dates: start: 20080218, end: 20080218
  2. FLOXACILLIN SODIUM [Concomitant]
     Route: 042
     Dates: start: 20080218, end: 20080219

REACTIONS (3)
  - COUGH [None]
  - DYSPHONIA [None]
  - EYELID OEDEMA [None]
